FAERS Safety Report 20526044 (Version 3)
Quarter: 2022Q1

REPORT INFORMATION
  Report Type: Report from Study
  Country: CN (occurrence: None)
  Receive Date: 20220228
  Receipt Date: 20220317
  Transmission Date: 20220423
  Serious: Yes (Hospitalization)
  Sender: FDA-Public Use
  Company Number: CN-ROCHE-3033556

PATIENT
  Age: 59 Year
  Sex: Male
  Weight: 72 kg

DRUGS (4)
  1. PLACEBO [Suspect]
     Active Substance: UNSPECIFIED INGREDIENT
     Indication: Non-small cell lung cancer stage IV
     Dosage: MOST RECENT DOSE OF BLINDED ATEZOLIZUMAB PRIOR TO EVENT: 28/JAN/2022
     Route: 041
     Dates: start: 20210709
  2. CARBOPLATIN [Suspect]
     Active Substance: CARBOPLATIN
     Indication: Non-small cell lung cancer stage IV
     Dosage: MOST RECENT DOSE (650 MG) OF CARBOPLATIN PRIOR TO EVENT ABNORMAL LIVER FUNCTION: 16/SEP/2021
     Route: 042
     Dates: start: 20210709
  3. BEVACIZUMAB [Suspect]
     Active Substance: BEVACIZUMAB
     Indication: Non-small cell lung cancer stage IV
     Dosage: MOST RECENT DOSE OF BEVACIZUMAB PRIOR TO EVENT ABNORMAL LIVER FUNCTION: 28/JAN/2022
     Route: 042
     Dates: start: 20210708
  4. PEMETREXED [Suspect]
     Active Substance: PEMETREXED
     Indication: Non-small cell lung cancer stage IV
     Dosage: MOST RECENT DOSE (650 MG) OF PEMETREXED PRIOR TO EVENT ABNORMAL LIVER FUNCTION: 28/JAN/2022
     Route: 042
     Dates: start: 20210709

REACTIONS (1)
  - Hepatic function abnormal [Not Recovered/Not Resolved]

NARRATIVE: CASE EVENT DATE: 20220218
